FAERS Safety Report 7585352-6 (Version None)
Quarter: 2011Q3

REPORT INFORMATION
  Report Type: 
  Country: None (occurrence: None)
  Receive Date: 20110701
  Receipt Date: 20090930
  Transmission Date: 20111222
  Serious: Yes (Other)
  Sender: FDA-Public Use
  Company Number: US-BAYER-200934524NA

PATIENT
  Age: 70 Year
  Sex: Female
  Weight: 126.98 kg

DRUGS (43)
  1. TRASYLOL [Suspect]
     Dosage: 50 ML/HR (INFUSION)
     Route: 042
     Dates: start: 20040410, end: 20040410
  2. BETAPACE [Concomitant]
     Dosage: 80 MG, BID
     Route: 048
     Dates: start: 20030101
  3. TYLENOL REGULAR [Concomitant]
     Route: 048
  4. PROTONIX [Concomitant]
     Dosage: 40 MG, QD
     Route: 048
  5. INSULIN [Concomitant]
     Dosage: UNK
     Route: 042
     Dates: start: 20040410, end: 20040410
  6. PAPAVERINE [Concomitant]
     Dosage: UNK
     Route: 042
     Dates: start: 20040410, end: 20040410
  7. ZESTRIL [Concomitant]
     Dosage: 20 MG, QD
     Route: 048
  8. LOVAZA [Concomitant]
     Dosage: 1000 MG, BID
     Route: 048
  9. PACKED RED BLOOD CELLS [Concomitant]
     Dosage: 1000 ML, UNK
     Route: 042
     Dates: start: 20040410, end: 20040410
  10. MAGNESIUM OXIDE [Concomitant]
     Dosage: 400 MG, BID
     Route: 048
  11. FENTANYL [Concomitant]
     Dosage: UNK
     Route: 042
     Dates: start: 20040410, end: 20040410
  12. PHENYLEPHRINE HCL [Concomitant]
     Dosage: UNK
     Route: 042
     Dates: start: 20040410, end: 20040410
  13. POTASSIUM CHLORIDE [Concomitant]
     Dosage: UNK
     Route: 042
     Dates: start: 20040410, end: 20040410
  14. NIPRIDE [Concomitant]
     Dosage: UNK
     Route: 042
     Dates: start: 20040410, end: 20040410
  15. PROPOFOL [Concomitant]
     Dosage: UNK
     Route: 042
     Dates: start: 20040410, end: 20040410
  16. PROTAMINE SULFATE [Concomitant]
     Dosage: UNK
     Route: 042
     Dates: start: 20040410, end: 20040410
  17. ZESTRIL [Concomitant]
  18. GLUCOTROL XL [Concomitant]
     Dosage: 5 MG, QD
     Route: 048
  19. LIDOCAINE [Concomitant]
     Dosage: UNK
     Route: 042
     Dates: start: 20040410, end: 20040410
  20. VECURONIUM BROMIDE [Concomitant]
     Dosage: UNK
     Route: 042
     Dates: start: 20040410, end: 20040410
  21. VANCOMYCIN [Concomitant]
     Dosage: UNK
     Route: 042
     Dates: start: 20040410, end: 20040410
  22. TRASYLOL [Suspect]
     Indication: CORONARY ARTERY BYPASS
     Dosage: 1 ML, ONCE (INITIAL)
     Route: 042
     Dates: start: 20040410, end: 20040410
  23. NIASPAN [Concomitant]
     Dosage: 500 MG, HS
     Route: 048
  24. ALBUMIN (HUMAN) [Concomitant]
     Dosage: 500 ML, UNK
     Route: 042
     Dates: start: 20040410, end: 20040410
  25. DIURETICS [Concomitant]
     Dosage: UNK
     Route: 048
     Dates: start: 20040101
  26. CELEBREX [Concomitant]
     Dosage: UNK
     Route: 048
     Dates: start: 20040101
  27. NITROGLYCERIN [Concomitant]
     Route: 060
  28. NITROGLYCERIN [Concomitant]
     Dosage: UNK
     Route: 042
     Dates: start: 20040410, end: 20040410
  29. NIACIN [Concomitant]
     Route: 048
  30. MAGNESIUM SULFATE [Concomitant]
     Dosage: UNK
     Route: 042
     Dates: start: 20040410, end: 20040410
  31. CRESTOR [Concomitant]
     Dosage: 10 MG, QD
     Route: 048
  32. ACETYLSALICYLIC ACID SRT [Concomitant]
     Dosage: 325 MG, QD
     Route: 048
  33. SOTALOL HCL [Concomitant]
     Route: 048
  34. HEPARIN [Concomitant]
     Dosage: UNK
     Route: 042
     Dates: start: 20040410, end: 20040410
  35. MANNITOL [Concomitant]
     Dosage: UNK
     Route: 042
     Dates: start: 20040410, end: 20040410
  36. TRASYLOL [Suspect]
     Indication: COX-MAZE PROCEDURE
     Dosage: 200 ML (LOADING)
     Route: 042
     Dates: start: 20040410, end: 20040410
  37. POTASSIUM CHLORIDE [Concomitant]
     Dosage: 40 MEQ, QD
     Route: 048
  38. DOPAMINE HCL [Concomitant]
     Dosage: UNK
     Route: 042
     Dates: start: 20040410, end: 20040410
  39. SODIUM BICARBONATE [Concomitant]
     Dosage: UNK
     Route: 042
     Dates: start: 20040410, end: 20040410
  40. FAMOTIDINE [Concomitant]
     Dosage: UNK
     Route: 042
     Dates: start: 20040410, end: 20040410
  41. TOPROL-XL [Concomitant]
     Dosage: 50 MG, QD
     Route: 048
  42. PERSANTINE [Concomitant]
     Route: 048
  43. KETOROLAC TROMETHAMINE [Concomitant]
     Dosage: UNK
     Route: 042
     Dates: start: 20040410, end: 20040410

REACTIONS (10)
  - RENAL FAILURE [None]
  - STRESS [None]
  - ANXIETY [None]
  - UNEVALUABLE EVENT [None]
  - FEAR [None]
  - INJURY [None]
  - RENAL IMPAIRMENT [None]
  - RENAL INJURY [None]
  - EMOTIONAL DISTRESS [None]
  - PAIN [None]
